FAERS Safety Report 5843562-X (Version None)
Quarter: 2008Q3

REPORT INFORMATION
  Report Type: 
  Country: None (occurrence: None)
  Receive Date: 20080813
  Receipt Date: 20080522
  Transmission Date: 20090109
  Serious: No
  Sender: FDA-Public Use
  Company Number: A0678615A

PATIENT
  Age: 70 Year
  Sex: Female

DRUGS (8)
  1. COREG CR [Suspect]
     Indication: LEFT VENTRICULAR DYSFUNCTION
     Dosage: 10MG PER DAY
     Route: 048
     Dates: start: 20070823
  2. INSULIN [Concomitant]
     Indication: DRUG USE FOR UNKNOWN INDICATION
  3. GLUCOPHAGE [Concomitant]
     Indication: DRUG USE FOR UNKNOWN INDICATION
  4. HYDROCHLOROTHIAZIDE [Concomitant]
     Indication: DRUG USE FOR UNKNOWN INDICATION
  5. ZETIA [Concomitant]
  6. PROTONIX [Concomitant]
     Indication: DRUG USE FOR UNKNOWN INDICATION
  7. BENICAR [Concomitant]
  8. BENICAR HCT [Concomitant]
     Indication: DRUG USE FOR UNKNOWN INDICATION

REACTIONS (3)
  - BLOOD PRESSURE INCREASED [None]
  - PERIPHERAL COLDNESS [None]
  - WEIGHT INCREASED [None]
